FAERS Safety Report 8544345 (Version 2)
Quarter: 2012Q4

REPORT INFORMATION
  Report Type: 
  Country: US (occurrence: US)
  Receive Date: 20120503
  Receipt Date: 20120907
  Transmission Date: 20130627
  Serious: Yes (Life-Threatening, Hospitalization)
  Sender: FDA-Public Use
  Company Number: US-BAYER-2012-042785

PATIENT
  Age: 21 Year
  Sex: Female
  Weight: 81.63 kg

DRUGS (8)
  1. YASMIN [Suspect]
     Indication: CONTRACEPTION
     Dosage: UNK
     Dates: start: 20070410, end: 20071101
  2. METRONIDAZOLE [Concomitant]
     Dosage: 0.75%
     Route: 067
  3. VITAMINS [Concomitant]
     Dosage: UNK
     Dates: start: 20070816
  4. IBUPROFEN [Concomitant]
     Dosage: 800 mg, UNK
  5. ACETAMINOPHEN W/PROPOXYPHENE [Concomitant]
  6. COZAAR [Concomitant]
  7. BACTROBAN [Concomitant]
  8. HIBICLENS [Concomitant]

REACTIONS (24)
  - Pulmonary embolism [None]
  - Deep vein thrombosis [None]
  - Injury [None]
  - Pain [None]
  - Anxiety [None]
  - Anhedonia [None]
  - Fear [None]
  - Cardio-respiratory arrest [None]
  - Respiratory arrest [None]
  - Ventricular fibrillation [None]
  - Atrial fibrillation [None]
  - Intracardiac thrombus [None]
  - Hypoxic-ischaemic encephalopathy [None]
  - Renal failure [None]
  - Atelectasis [None]
  - Pleural effusion [None]
  - Sepsis [None]
  - Pneumonitis [None]
  - Fungaemia [None]
  - Liver disorder [None]
  - Syncope [None]
  - Oedema peripheral [None]
  - Gait disturbance [None]
  - Total lung capacity decreased [None]
